FAERS Safety Report 13421048 (Version 1)
Quarter: 2017Q2

REPORT INFORMATION
  Report Type: Spontaneous
  Country: ES (occurrence: ES)
  Receive Date: 20170410
  Receipt Date: 20170410
  Transmission Date: 20170830
  Serious: Yes (Hospitalization)
  Sender: FDA-Public Use
  Company Number: ES-STRIDES ARCOLAB LIMITED-2017SP006066

PATIENT

DRUGS (1)
  1. RANITIDINE. [Suspect]
     Active Substance: RANITIDINE
     Indication: GASTROOESOPHAGEAL REFLUX DISEASE
     Dosage: 4 MG/KG/DAY, DIVIDED BID
     Route: 065

REACTIONS (3)
  - Eye movement disorder [Recovered/Resolved]
  - Gaze palsy [Recovered/Resolved]
  - Nystagmus [Recovered/Resolved]
